FAERS Safety Report 23774956 (Version 1)
Quarter: 2024Q2

REPORT INFORMATION
  Report Type: Spontaneous
  Country: US (occurrence: None)
  Receive Date: 20240423
  Receipt Date: 20240423
  Transmission Date: 20240716
  Serious: No
  Sender: FDA-Public Use
  Company Number: None

PATIENT
  Age: 27 Year
  Sex: Male
  Weight: 65.25 kg

DRUGS (5)
  1. CIBINQO [Suspect]
     Active Substance: ABROCITINIB
     Indication: Eczema
     Route: 048
     Dates: start: 20240411, end: 20240419
  2. TRILEPTAL [Suspect]
     Active Substance: OXCARBAZEPINE
  3. MULTI VITAMIN [Concomitant]
  4. FISH OIL [Concomitant]
     Active Substance: FISH OIL
  5. TURMERIC [Concomitant]

REACTIONS (4)
  - Penile blister [None]
  - Penile dermatitis [None]
  - Scab [None]
  - Pruritus genital [None]

NARRATIVE: CASE EVENT DATE: 20240415
